FAERS Safety Report 17131176 (Version 1)
Quarter: 2019Q4

REPORT INFORMATION
  Report Type: Report from Study
  Country: FR (occurrence: FR)
  Receive Date: 20191209
  Receipt Date: 20191209
  Transmission Date: 20200122
  Serious: Yes (Other)
  Sender: FDA-Public Use
  Company Number: NVSC2019FR049747

PATIENT
  Sex: Female

DRUGS (2)
  1. COSENTYX [Suspect]
     Active Substance: SECUKINUMAB
     Indication: PSORIASIS
     Dosage: UNK
     Route: 065
     Dates: start: 20190809
  2. COSENTYX [Suspect]
     Active Substance: SECUKINUMAB
     Indication: GUTTATE PSORIASIS

REACTIONS (3)
  - Wound infection [Not Recovered/Not Resolved]
  - Contusion [Not Recovered/Not Resolved]
  - Arthropod bite [Not Recovered/Not Resolved]
